FAERS Safety Report 8972783 (Version 2)
Quarter: 2013Q1

REPORT INFORMATION
  Report Type: Spontaneous
  Country: US (occurrence: US)
  Receive Date: 20121219
  Receipt Date: 20130222
  Transmission Date: 20140127
  Serious: Yes (Other)
  Sender: FDA-Public Use
  Company Number: US-TEVA-376280USA

PATIENT
  Age: 4 Year
  Sex: Male
  Weight: 17.7 kg

DRUGS (7)
  1. CLARAVIS [Suspect]
     Indication: MEDULLOBLASTOMA
     Route: 048
     Dates: start: 20120801, end: 20121110
  2. ONDANSETRON [Concomitant]
  3. LORAZEPAM [Concomitant]
  4. POTASSIUM [Concomitant]
  5. MEGESTROL ACETATE [Concomitant]
  6. MAGNESIUM [Concomitant]
  7. GABAPENTIN [Concomitant]

REACTIONS (2)
  - Medulloblastoma [Not Recovered/Not Resolved]
  - Off label use [Unknown]
